FAERS Safety Report 8078858-7 (Version None)
Quarter: 2012Q1

REPORT INFORMATION
  Report Type: 
  Country: None (occurrence: None)
  Receive Date: 20120127
  Receipt Date: 20110121
  Transmission Date: 20120608
  Serious: No
  Sender: FDA-Public Use
  Company Number: US-ABBOTT-11P-163-0699846-00

PATIENT
  Age: 62 Year
  Sex: Female

DRUGS (19)
  1. GLARGINE [Concomitant]
     Indication: DIABETES MELLITUS
     Dosage: IN THE MORNING
  2. HUMIRA [Suspect]
     Indication: ANKYLOSING SPONDYLITIS
  3. LISINOPRIL [Concomitant]
     Indication: HYPERTENSION
  4. BUPROPION HCL [Concomitant]
     Indication: BIPOLAR DISORDER
     Dosage: 2, TWICE DAILY
  5. OXYBUTYNINE [Concomitant]
     Indication: INCONTINENCE
  6. SIMVASTATIN [Concomitant]
     Indication: BLOOD CHOLESTEROL INCREASED
     Dosage: 1/2 TAB DAILY
  7. ACYCLOVIR [Concomitant]
     Indication: HERPES VIRUS INFECTION
  8. ASPART [Concomitant]
     Indication: DIABETES MELLITUS
     Dosage: 30 UNITS IN THE MORNING + 20 UNITS AT LUNCH AND DINNER
  9. LASIX [Concomitant]
     Indication: OEDEMA PERIPHERAL
  10. LORAZEPAM [Concomitant]
     Indication: ANXIETY
     Dosage: TWICE DAILY AND 4 TABS BEFORE BED
  11. HYDROCHLOROQUINE [Concomitant]
     Indication: ARTHRITIS
  12. POTASSIUM [Concomitant]
     Indication: PRODUCT USED FOR UNKNOWN INDICATION
  13. HYDROCHLOROTHIAZIDE [Concomitant]
     Indication: HYPERTENSION
  14. AMLODIPINE [Concomitant]
     Indication: HYPERTENSION
     Dosage: 1/2 TAB DAILY
  15. VITAMIN TAB [Concomitant]
     Indication: PRODUCT USED FOR UNKNOWN INDICATION
     Dosage: DAILY
  16. OXYBUTYNINE [Concomitant]
     Indication: MICTURITION URGENCY
  17. METOPROLOL TARTRATE [Concomitant]
     Indication: HYPERTENSION
     Dosage: 1.5 TABS TWICE DAILY
  18. RANITIDINE [Concomitant]
     Indication: GASTROOESOPHAGEAL REFLUX DISEASE
  19. ALENDRONATE SODIUM [Concomitant]
     Indication: BONE DISORDER

REACTIONS (2)
  - RASH PAPULAR [None]
  - RASH PRURITIC [None]
